FAERS Safety Report 5661813-1 (Version None)
Quarter: 2008Q1

REPORT INFORMATION
  Report Type: 
  Country: None (occurrence: None)
  Receive Date: 20080229
  Receipt Date: 20080219
  Transmission Date: 20080703
  Serious: Yes (Other)
  Sender: FDA-Public Use
  Company Number: 2007336550

PATIENT
  Age: 52 Year
  Sex: Male

DRUGS (1)
  1. ROGAINE 5 [Suspect]
     Indication: ALOPECIA
     Dosage: 1/2 D CAP, TWICE A DAY (2 IN 1 D), TOPICAL
     Route: 061
     Dates: start: 20061225, end: 20071220

REACTIONS (6)
  - ALOPECIA [None]
  - BLISTER [None]
  - BURNING SENSATION [None]
  - EXFOLIATIVE RASH [None]
  - HAEMORRHAGE [None]
  - SCAB [None]
